FAERS Safety Report 4602654-3 (Version None)
Quarter: 2005Q1

REPORT INFORMATION
  Report Type: 
  Country: None (occurrence: None)
  Receive Date: 20050307
  Receipt Date: 20050224
  Transmission Date: 20050727
  Serious: Yes (Hospitalization, Other)
  Sender: FDA-Public Use
  Company Number: 2005037252

PATIENT
  Sex: Female

DRUGS (3)
  1. LIPITOR [Suspect]
     Indication: ILL-DEFINED DISORDER
     Dosage: UNKNOWN
     Route: 065
  2. WARFARIN SODIUM [Concomitant]
  3. FUROSEMIDE [Concomitant]

REACTIONS (4)
  - CARDIAC DISORDER [None]
  - CARDIAC OPERATION [None]
  - MITRAL VALVE REPLACEMENT [None]
  - NEOPLASM MALIGNANT [None]
